FAERS Safety Report 18119163 (Version 1)
Quarter: 2020Q3

REPORT INFORMATION
  Report Type: Spontaneous
  Country: CA (occurrence: CA)
  Receive Date: 20200806
  Receipt Date: 20200806
  Transmission Date: 20201103
  Serious: Yes (Other)
  Sender: FDA-Public Use
  Company Number: CA-PFIZER INC-2020295974

PATIENT
  Sex: Female
  Weight: 110 kg

DRUGS (8)
  1. MEFENAMIC ACID. [Concomitant]
     Active Substance: MEFENAMIC ACID
  2. NAPROXEN. [Concomitant]
     Active Substance: NAPROXEN
     Dosage: 500 MG, 2 EVERY 1 DAYS
  3. DEMEROL [Concomitant]
     Active Substance: MEPERIDINE HYDROCHLORIDE
     Dosage: 50 MG, 2 EVERY 1 DAYS
  4. CODEINE [Suspect]
     Active Substance: CODEINE
     Dosage: UNK
  5. GABAPENTIN. [Suspect]
     Active Substance: GABAPENTIN
     Dosage: UNK
  6. HUMIRA [Suspect]
     Active Substance: ADALIMUMAB
     Indication: ANKYLOSING SPONDYLITIS
     Dosage: 40 MG, 1 EVERY 2 WEEKS
     Route: 058
  7. MEPERIDINE [Concomitant]
     Active Substance: MEPERIDINE
     Dosage: 50 MG, 2 EVERY 1 DAYS
  8. ONDANSETRON [Concomitant]
     Active Substance: ONDANSETRON
     Dosage: UNK

REACTIONS (7)
  - Drug hypersensitivity [Unknown]
  - Pain [Unknown]
  - Spinal pain [Unknown]
  - Swelling [Unknown]
  - Drug ineffective [Unknown]
  - Bipolar I disorder [Unknown]
  - Musculoskeletal stiffness [Unknown]
